FAERS Safety Report 21979353 (Version 1)
Quarter: 2023Q1

REPORT INFORMATION
  Report Type: Spontaneous
  Country: US (occurrence: US)
  Receive Date: 20230210
  Receipt Date: 20230210
  Transmission Date: 20230418
  Serious: No
  Sender: FDA-Public Use
  Company Number: US-AMGEN-USASP2023022693

PATIENT

DRUGS (15)
  1. MVASI [Suspect]
     Active Substance: BEVACIZUMAB-AWWB
     Indication: Product used for unknown indication
     Dosage: UNK
     Route: 065
  2. MVASI [Suspect]
     Active Substance: BEVACIZUMAB-AWWB
     Dosage: UNK
     Route: 065
  3. MVASI [Suspect]
     Active Substance: BEVACIZUMAB-AWWB
     Dosage: UNK
     Route: 065
  4. MVASI [Suspect]
     Active Substance: BEVACIZUMAB-AWWB
     Dosage: UNK
     Route: 065
  5. ARANESP [Suspect]
     Active Substance: DARBEPOETIN ALFA
     Indication: Product used for unknown indication
     Dosage: UNK
     Route: 065
  6. ARANESP [Suspect]
     Active Substance: DARBEPOETIN ALFA
     Dosage: UNK
     Route: 065
  7. KANJINTI [Suspect]
     Active Substance: TRASTUZUMAB-ANNS
     Indication: Product used for unknown indication
     Dosage: UNK
     Route: 065
  8. XGEVA [Suspect]
     Active Substance: DENOSUMAB
     Indication: Product used for unknown indication
     Dosage: UNK
     Route: 065
  9. XGEVA [Suspect]
     Active Substance: DENOSUMAB
     Dosage: UNK
     Route: 065
  10. PROLIA [Suspect]
     Active Substance: DENOSUMAB
     Indication: Product used for unknown indication
     Dosage: UNK
     Route: 065
  11. PROLIA [Suspect]
     Active Substance: DENOSUMAB
     Dosage: UNK
     Route: 065
  12. KYPROLIS [Suspect]
     Active Substance: CARFILZOMIB
     Indication: Product used for unknown indication
     Route: 065
  13. VECTIBIX [Suspect]
     Active Substance: PANITUMUMAB
     Indication: Product used for unknown indication
     Route: 065
  14. NEULASTA [Suspect]
     Active Substance: PEGFILGRASTIM
     Indication: Product used for unknown indication
     Route: 065
  15. NEUPOGEN [Suspect]
     Active Substance: FILGRASTIM
     Indication: Product used for unknown indication
     Route: 065

REACTIONS (2)
  - Product storage error [Unknown]
  - Circumstance or information capable of leading to medication error [Unknown]
